FAERS Safety Report 23510425 (Version 2)
Quarter: 2024Q2

REPORT INFORMATION
  Report Type: Other
  Country: US (occurrence: None)
  Receive Date: 20240211
  Receipt Date: 20240403
  Transmission Date: 20240716
  Serious: Yes (Other)
  Sender: FDA-Public Use
  Company Number: US-ROCHE-3501539

PATIENT
  Age: 44 Year
  Sex: Female

DRUGS (1)
  1. OCREVUS [Suspect]
     Active Substance: OCRELIZUMAB
     Indication: Relapsing multiple sclerosis
     Dosage: SUBSEQUENT DOSE RECEIVED ON 17/JAN/2024
     Route: 065
     Dates: start: 20200124

REACTIONS (2)
  - Herpes zoster [Unknown]
  - Blindness [Unknown]
